FAERS Safety Report 17390912 (Version 1)
Quarter: 2020Q1

REPORT INFORMATION
  Report Type: Spontaneous
  Country: FR (occurrence: FR)
  Receive Date: 20200207
  Receipt Date: 20200207
  Transmission Date: 20200409
  Serious: Yes (Hospitalization)
  Sender: FDA-Public Use
  Company Number: FR-SA-2020SA032461

PATIENT
  Age: 78 Year
  Sex: Female

DRUGS (13)
  1. LEVOCETIRIZINE [Suspect]
     Active Substance: LEVOCETIRIZINE
     Indication: INTERTRIGO
     Dosage: UNK
     Route: 003
     Dates: start: 20191220, end: 20200102
  2. DICLOFENAC SODIUM. [Suspect]
     Active Substance: DICLOFENAC SODIUM
     Indication: INTERTRIGO
     Dosage: UNK
     Route: 003
     Dates: start: 20191225, end: 20191225
  3. SERTRALINE ACTAVIS [Concomitant]
     Active Substance: SERTRALINE HYDROCHLORIDE
     Dosage: UNK
  4. BROMAZEPAM [Concomitant]
     Active Substance: BROMAZEPAM
     Dosage: UNK
  5. HAMAMELIS COMPOSE [Concomitant]
     Dosage: UNK
  6. CLOBETASOL PROPIONATE. [Suspect]
     Active Substance: CLOBETASOL PROPIONATE
     Indication: INTERTRIGO
     Dosage: UNK
     Route: 003
     Dates: start: 20191206, end: 20191220
  7. NOCTAMIDE [Concomitant]
     Active Substance: LORMETAZEPAM
     Dosage: UNK
  8. COLECALCIFEROL [Concomitant]
     Active Substance: CHOLECALCIFEROL
     Dosage: UNK
  9. FONX [Suspect]
     Active Substance: OXICONAZOLE NITRATE
     Indication: INTERTRIGO
     Dosage: UNK
     Route: 003
     Dates: start: 20191206, end: 20191220
  10. MIANSERINE ALMUS [Concomitant]
     Active Substance: MIANSERIN HYDROCHLORIDE
     Dosage: UNK
  11. FORTZAAR [Concomitant]
     Active Substance: HYDROCHLOROTHIAZIDE\LOSARTAN POTASSIUM
     Dosage: UNK
  12. INFLUVAC TETRA [Concomitant]
     Active Substance: INFLUENZA VIRUS VACCINE QUADRIVALENT TYPE A+B
     Dosage: UNK
  13. ECONAZOLE. [Suspect]
     Active Substance: ECONAZOLE NITRATE
     Indication: INTERTRIGO
     Dosage: UNK
     Route: 003
     Dates: start: 20191220, end: 20200102

REACTIONS (3)
  - General physical health deterioration [Recovered/Resolved]
  - Dermatitis exfoliative generalised [Recovered/Resolved]
  - Skin exfoliation [Recovered/Resolved]

NARRATIVE: CASE EVENT DATE: 20200102
